FAERS Safety Report 4875137-3 (Version None)
Quarter: 2006Q1

REPORT INFORMATION
  Report Type: 
  Country: None (occurrence: None)
  Receive Date: 20060105
  Receipt Date: 20051223
  Transmission Date: 20060701
  Serious: Yes (Hospitalization)
  Sender: FDA-Public Use
  Company Number: HQWYE610626AUG04

PATIENT
  Age: 35 Year
  Sex: Female

DRUGS (2)
  1. TACROLIMUS, CONTROL FOR SIROLIMUS (TACROLIMUS, CONTROL FOR SIROLIMUS, [Suspect]
     Indication: PROPHYLAXIS AGAINST TRANSPLANT REJECTION
     Dosage: 3 MG 2X PER 1 DAY, ORAL
     Route: 048
     Dates: start: 20040808, end: 20040101
  2. CELLCEPT [Concomitant]

REACTIONS (3)
  - BLOOD PRESSURE INADEQUATELY CONTROLLED [None]
  - IMPAIRED GASTRIC EMPTYING [None]
  - PHAEOCHROMOCYTOMA [None]
